FAERS Safety Report 8452973-8 (Version None)
Quarter: 2012Q2

REPORT INFORMATION
  Report Type: 
  Country: None (occurrence: None)
  Receive Date: 20120620
  Receipt Date: 20120518
  Transmission Date: 20120825
  Serious: No
  Sender: FDA-Public Use
  Company Number: US-VERTEX PHARMACEUTICALS INC.-AE-2012-006390

PATIENT
  Sex: Male
  Weight: 90.8 kg

DRUGS (9)
  1. RIBAVIRIN [Concomitant]
     Indication: HEPATITIS C
     Route: 048
     Dates: start: 20120406, end: 20120514
  2. FLUOXETINE [Concomitant]
  3. ALLOPURINOL [Concomitant]
     Indication: GOUT
     Route: 048
  4. PEGASYS [Concomitant]
     Indication: HEPATITIS C
     Dates: start: 20120406, end: 20120514
  5. INCIVEK [Suspect]
     Indication: HEPATITIS C
     Route: 048
     Dates: start: 20120406, end: 20120514
  6. NORCO [Concomitant]
  7. LORATADINE [Concomitant]
  8. COZAAR [Concomitant]
  9. ATARAX [Concomitant]

REACTIONS (5)
  - TREMOR [None]
  - CHILLS [None]
  - PYREXIA [None]
  - GOUT [None]
  - RASH MACULO-PAPULAR [None]
